FAERS Safety Report 9858033 (Version 1)
Quarter: 2014Q1

REPORT INFORMATION
  Report Type: Spontaneous
  Country: US (occurrence: US)
  Receive Date: 20140131
  Receipt Date: 20140131
  Transmission Date: 20141002
  Serious: Yes (Other)
  Sender: FDA-Public Use
  Company Number: PHEH2014US002030

PATIENT
  Sex: Female

DRUGS (6)
  1. DIOVAN [Suspect]
     Dosage: UNK UKN, UNK
  2. DIOVAN HCT [Suspect]
     Dosage: 1 DF (320/25 MG), PER DAY
  3. ACTOSE [Concomitant]
     Dosage: 1 (30 MG), PER DAY
  4. SIMVASTATIN [Concomitant]
     Dosage: 40 MG, UNK
  5. COUMADINE [Concomitant]
     Dosage: UNK UKN, UNK
  6. WARFARIN [Concomitant]
     Dosage: UNK UKN, UNK

REACTIONS (3)
  - Thrombosis [Unknown]
  - Diabetes mellitus [Unknown]
  - Hypertension [Unknown]
